FAERS Safety Report 7740511 (Version 2)
Quarter: 2013Q1

REPORT INFORMATION
  Report Type: Report from Study
  Country: US (occurrence: US)
  Receive Date: 20101227
  Receipt Date: 20130116
  Transmission Date: 20140127
  Serious: Yes (Hospitalization)
  Sender: FDA-Public Use
  Company Number: US-ABBOTT-10P-163-0692551-00

PATIENT
  Sex: Female
  Weight: 62.65 kg

DRUGS (14)
  1. HUMIRA 40 MG/0.8 ML PEN [Suspect]
     Indication: RHEUMATOID ARTHRITIS
     Route: 058
     Dates: start: 200902, end: 201004
  2. HUMIRA 40 MG/0.8 ML PEN [Suspect]
  3. METHOTREXATE [Concomitant]
     Indication: RHEUMATOID ARTHRITIS
     Dates: end: 201004
  4. METHOTREXATE [Concomitant]
  5. SALICYLATE [Concomitant]
     Indication: INFLAMMATION
  6. SALICYLATE [Concomitant]
     Indication: PAIN
  7. ADVIL [Concomitant]
     Indication: PAIN
  8. FOLIC ACID [Concomitant]
     Indication: PRODUCT USED FOR UNKNOWN INDICATION
  9. ATENOLOL [Concomitant]
     Indication: HYPERTENSION
  10. FUROSEMIDE [Concomitant]
     Indication: HYPERTENSION
  11. AMLODOPINE [Concomitant]
     Indication: HYPERTENSION
  12. TYLENOL [Concomitant]
     Indication: PAIN
  13. CALCIUM NITRATE [Concomitant]
     Indication: BONE DISORDER
  14. RECLAST [Concomitant]
     Indication: OSTEOPOROSIS
     Route: 042

REACTIONS (4)
  - Hip fracture [Recovered/Resolved]
  - Bone cyst [Unknown]
  - Groin pain [Recovered/Resolved]
  - Limb asymmetry [Not Recovered/Not Resolved]
